FAERS Safety Report 6746913-7 (Version None)
Quarter: 2010Q2

REPORT INFORMATION
  Report Type: 
  Country: None (occurrence: None)
  Receive Date: 20100528
  Receipt Date: 20091014
  Transmission Date: 20101027
  Serious: No
  Sender: FDA-Public Use
  Company Number: US-ASTRAZENECA-2009SE31968

PATIENT
  Sex: Male

DRUGS (6)
  1. PRILOSEC OTC [Suspect]
     Dosage: 1 TABLET, 1 /DAY
     Route: 048
     Dates: start: 20081014, end: 20091014
  2. WARFARIN SODIUM [Concomitant]
     Dosage: UNKNOWN
  3. VERAPAMIL [Concomitant]
     Dosage: UNKNOWN
  4. ATENOLOL [Concomitant]
     Dosage: UNKNOWN
  5. PRAVACHOL [Concomitant]
     Dosage: UNKNOWN
  6. CELEBREX [Concomitant]
     Dosage: UNKNOWN

REACTIONS (3)
  - INCORRECT DRUG ADMINISTRATION DURATION [None]
  - LABELLED DRUG-DRUG INTERACTION MEDICATION ERROR [None]
  - PAIN [None]
